FAERS Safety Report 4607707-1 (Version None)
Quarter: 2005Q2

REPORT INFORMATION
  Report Type: 
  Country: None (occurrence: None)
  Receive Date: 20050309
  Receipt Date: 20050301
  Transmission Date: 20051028
  Serious: Yes (Life-Threatening, Hospitalization)
  Sender: FDA-Public Use
  Company Number: CHNY2005DE00498

PATIENT
  Age: 81 Year
  Sex: Female

DRUGS (5)
  1. TAVEGIL (NCH)(CLEMSATINE HYDROGEN FUMARATE) TABLET [Suspect]
     Indication: DERMATITIS ATOPIC
     Dosage: ORAL
     Route: 048
     Dates: start: 20050210
  2. SOLIAN (AMISULPRIDE) [Concomitant]
     Dosage: SEE IMAGE
     Dates: start: 20050210, end: 20050216
  3. SOLIAN (AMISULPRIDE) [Concomitant]
     Dosage: SEE IMAGE
     Dates: start: 20050217
  4. LASIX [Suspect]
  5. CETIRIZINE HCL [Suspect]
     Dates: start: 20050210

REACTIONS (2)
  - BLOOD POTASSIUM DECREASED [None]
  - ELECTROCARDIOGRAM QT PROLONGED [None]
